FAERS Safety Report 6423952-7 (Version None)
Quarter: 2009Q4

REPORT INFORMATION
  Report Type: 
  Country: None (occurrence: None)
  Receive Date: 20091102
  Receipt Date: 20091027
  Transmission Date: 20100525
  Serious: Yes (Death, Hospitalization)
  Sender: FDA-Public Use
  Company Number: PHHY2009BR46743

PATIENT
  Sex: Female

DRUGS (19)
  1. EXFORGE [Suspect]
     Indication: HYPERTENSION
     Dosage: 1 TABLET DAILY
     Route: 048
  2. EUTIROX [Concomitant]
     Indication: HYPOTHYROIDISM
     Dosage: 1 DF (50MG) DAILY
     Route: 048
  3. BALCOR [Concomitant]
     Indication: HYPERTENSION
     Dosage: 3 DF (60 MG) DAILY
     Route: 048
  4. SERTRALINE HYDROCHLORIDE [Concomitant]
     Indication: DEPRESSION
     Dosage: 1 DF (25 MG) DAILY
     Route: 048
  5. TEBONIN [Concomitant]
     Indication: LABYRINTHITIS
     Dosage: 1 DF, BID
     Route: 048
  6. NOOTROPYL [Concomitant]
     Indication: NERVOUS SYSTEM DISORDER
     Dosage: 1 DF, BID
     Route: 048
  7. TERMARID [Concomitant]
     Indication: VITAMIN SUPPLEMENTATION
     Dosage: 1 TABLET DAILY
     Route: 048
  8. BENERVA [Concomitant]
     Indication: MUSCULOSKELETAL PAIN
     Dosage: 2 DF (300 MG) DAILY
     Route: 048
  9. PLAVIX [Concomitant]
     Indication: ANTICOAGULANT THERAPY
     Dosage: 1 DF (75 MG) DAILY
     Route: 048
  10. NATRILIX - SLOW RELEASE [Concomitant]
     Indication: DIURETIC THERAPY
     Dosage: 1 DF (1.5 MG) DAILY
     Route: 048
  11. IRON POLYMALTOSE [Concomitant]
     Indication: ANAEMIA
     Dosage: 1 TABLET DAILY
     Route: 048
  12. APEVITIN BC [Concomitant]
     Indication: APPETITE DISORDER
     Dosage: ONE DESSERT SPOON ONCE DAILY
  13. LIPITOR [Concomitant]
     Indication: BLOOD CHOLESTEROL INCREASED
     Dosage: 1 DF (80 MG) DAILY
     Route: 048
  14. LIPITOR [Concomitant]
     Indication: BLOOD TRIGLYCERIDES
  15. MYLANTA PLUS [Concomitant]
  16. CEFALIV [Concomitant]
     Indication: HEADACHE
     Dosage: 2 TABLETS DAILY WHEN NEEDED
  17. RIVOTRIL [Concomitant]
     Indication: AGITATION
     Dosage: UNK
  18. CAPOTEC [Concomitant]
  19. ISORDIL [Concomitant]
     Indication: DYSPNOEA
     Dosage: ONE TABLET IF SHE NEEDED

REACTIONS (6)
  - CHOKING [None]
  - ISCHAEMIC CARDIOMYOPATHY [None]
  - MEDICATION ERROR [None]
  - PNEUMONIA [None]
  - PULMONARY SEPSIS [None]
  - TRACHEOSTOMY [None]
